FAERS Safety Report 25289375 (Version 1)
Quarter: 2025Q2

REPORT INFORMATION
  Report Type: Spontaneous
  Country: US (occurrence: US)
  Receive Date: 20250509
  Receipt Date: 20250509
  Transmission Date: 20250717
  Serious: Yes (Other)
  Sender: EISAI
  Company Number: US-Eisai-EC-2025-188762

PATIENT
  Age: 68 Year
  Sex: Female

DRUGS (1)
  1. LECANEMAB [Suspect]
     Active Substance: LECANEMAB
     Indication: Product used for unknown indication

REACTIONS (4)
  - Lacunar infarction [Unknown]
  - Amyloid related imaging abnormality-oedema/effusion [Recovering/Resolving]
  - Photophobia [Unknown]
  - Amyloid related imaging abnormality-microhaemorrhages and haemosiderin deposits [Recovering/Resolving]

NARRATIVE: CASE EVENT DATE: 20250101
